FAERS Safety Report 19689614 (Version 1)
Quarter: 2021Q3

REPORT INFORMATION
  Report Type: Spontaneous
  Country: US (occurrence: US)
  Receive Date: 20210812
  Receipt Date: 20210812
  Transmission Date: 20211014
  Serious: No
  Sender: FDA-Public Use
  Company Number: US-TEVA-2021-US-1940491

PATIENT
  Sex: Female

DRUGS (2)
  1. COPAXONE [Suspect]
     Active Substance: GLATIRAMER ACETATE
     Dosage: FORM STRENGTH UNKNOWN
     Route: 065
  2. AUTOJECT2 (DEVICE) [Suspect]
     Active Substance: DEVICE
     Route: 065

REACTIONS (5)
  - Injection site pain [Unknown]
  - Injection site pruritus [Recovered/Resolved]
  - Device malfunction [Unknown]
  - Injection site mass [Unknown]
  - Injection site induration [Unknown]
